FAERS Safety Report 5449468-2 (Version None)
Quarter: 2007Q3

REPORT INFORMATION
  Report Type: 
  Country: None (occurrence: None)
  Receive Date: 20070911
  Receipt Date: 20070830
  Transmission Date: 20080115
  Serious: Yes (Other)
  Sender: FDA-Public Use
  Company Number: US-PFIZER INC-2007073708

PATIENT
  Sex: Female
  Weight: 75.8 kg

DRUGS (3)
  1. CHANTIX [Suspect]
     Indication: SMOKING CESSATION THERAPY
     Dates: start: 20070601, end: 20070801
  2. PREMARIN WITH METHYLTESTOSTERONE [Concomitant]
     Indication: HORMONE REPLACEMENT THERAPY
  3. ASPIRIN [Concomitant]

REACTIONS (5)
  - CRYING [None]
  - DEPENDENCE [None]
  - DEPRESSED MOOD [None]
  - PANIC ATTACK [None]
  - PARAESTHESIA [None]
